FAERS Safety Report 6890614-1 (Version None)
Quarter: 2010Q3

REPORT INFORMATION
  Report Type: 
  Country: None (occurrence: None)
  Receive Date: 20100731
  Receipt Date: 20090109
  Transmission Date: 20110219
  Serious: No
  Sender: FDA-Public Use
  Company Number: US-PFIZER INC-2009154467

PATIENT
  Sex: Male
  Weight: 86.18 kg

DRUGS (2)
  1. LIPITOR [Suspect]
     Dosage: 10 MG, 1X/DAY
     Dates: start: 20080401, end: 20090101
  2. TRICOR [Concomitant]
     Dosage: UNK

REACTIONS (4)
  - ALOPECIA [None]
  - FOLLICULITIS [None]
  - SCAB [None]
  - STRESS [None]
